FAERS Safety Report 4692649-6 (Version None)
Quarter: 2005Q2

REPORT INFORMATION
  Report Type: 
  Country: None (occurrence: None)
  Receive Date: 20050617
  Receipt Date: 20050217
  Transmission Date: 20051028
  Serious: Yes (Life-Threatening, Hospitalization, Disabling, Other)
  Sender: FDA-Public Use
  Company Number: US-MERCK-0502USA02315

PATIENT
  Age: 74 Year
  Sex: Male
  Weight: 70 kg

DRUGS (4)
  1. VIOXX [Suspect]
     Indication: MONARTHRITIS
     Route: 048
     Dates: start: 20010101, end: 20040101
  2. VIOXX [Suspect]
     Route: 048
     Dates: start: 20010101, end: 20040101
  3. LISINOPRIL [Concomitant]
     Route: 065
  4. ACIPHEX [Concomitant]
     Route: 065

REACTIONS (23)
  - ANAEMIA [None]
  - AORTIC DILATATION [None]
  - BARRETT'S OESOPHAGUS [None]
  - BURSITIS [None]
  - CHOLELITHIASIS [None]
  - COLONIC POLYP [None]
  - CORONARY ARTERY DISEASE [None]
  - HEPATIC CYST [None]
  - HYPERTENSION [None]
  - IRON DEFICIENCY [None]
  - KYPHOSIS [None]
  - RECTAL ADENOMA [None]
  - RENAL ANEURYSM [None]
  - RENAL ARTERY ATHEROSCLEROSIS [None]
  - RENAL ARTERY OCCLUSION [None]
  - RENAL ATROPHY [None]
  - RENAL CYST [None]
  - RENAL IMPAIRMENT [None]
  - RENAL LIPOMATOSIS [None]
  - SEXUAL DYSFUNCTION [None]
  - TESTICULAR ATROPHY [None]
  - TINNITUS [None]
  - WEIGHT DECREASED [None]
